FAERS Safety Report 8314009-9 (Version None)
Quarter: 2012Q2

REPORT INFORMATION
  Report Type: 
  Country: None (occurrence: None)
  Receive Date: 20120426
  Receipt Date: 20120420
  Transmission Date: 20120825
  Serious: Yes (Other)
  Sender: FDA-Public Use
  Company Number: US-AMGEN-USASP2011026856

PATIENT
  Age: 68 Year
  Sex: Male
  Weight: 98.5 kg

DRUGS (20)
  1. FLOMAX [Concomitant]
     Dosage: 0.4 MG, BID
     Route: 048
  2. OMEPRAZOLE [Concomitant]
     Dosage: 40 MG, QD
  3. VERAPAMIL [Concomitant]
     Dosage: 180 MG, BID
  4. PROMACTA [Concomitant]
     Dosage: UNK
  5. NPLATE [Suspect]
     Dosage: 99 MUG, QWK
     Dates: start: 20120316
  6. DIGOXIN [Concomitant]
     Dosage: 250 MUG, UNK
     Route: 048
  7. GLYBURIDE AND METFORMIN HYDROCHLORIDE [Concomitant]
     Route: 048
  8. XALATAN [Concomitant]
     Route: 047
  9. NPLATE [Suspect]
     Dosage: 99 MUG, QWK
     Dates: end: 20110101
  10. NPLATE [Suspect]
     Dates: start: 20100820
  11. NIASPAN [Concomitant]
     Dosage: 500 MG, QD
     Route: 048
  12. NPLATE [Suspect]
     Indication: IDIOPATHIC THROMBOCYTOPENIC PURPURA
     Dosage: 99 MUG, QWK
     Dates: start: 20100820
  13. NPLATE [Suspect]
     Dosage: 99 MUG, QWK
     Dates: end: 20120420
  14. PREDNISONE TAB [Concomitant]
     Dosage: 2.5 MG, UNK
     Dates: start: 20100812
  15. ASPIRIN [Concomitant]
     Dosage: 325 MG, QD
     Route: 048
  16. FUROSEMIDE [Concomitant]
     Dosage: 20 MG, QOD
     Route: 048
  17. LANTUS [Concomitant]
  18. PRAVASTATIN SODIUM [Concomitant]
     Dosage: 80 MG, QD
     Route: 048
  19. VICTOZA [Concomitant]
     Dosage: 0.8 MG, UNK
     Route: 058
  20. VIAGRA [Concomitant]
     Dosage: 50 MG, PRN
     Route: 048

REACTIONS (3)
  - OEDEMA PERIPHERAL [None]
  - DIABETES MELLITUS INADEQUATE CONTROL [None]
  - VENOUS INSUFFICIENCY [None]
